FAERS Safety Report 8787330 (Version 1)
Quarter: 2012Q4

REPORT INFORMATION
  Report Type: Report from Study
  Country: US (occurrence: US)
  Receive Date: 20120914
  Receipt Date: 20120914
  Transmission Date: 20130627
  Serious: No
  Sender: FDA-Public Use
  Company Number: US-VERTEX PHARMACEUTICAL INC.-AE-2012-009083

PATIENT
  Age: 60 Year
  Sex: Female
  Weight: 67.1 kg

DRUGS (5)
  1. INCIVEK [Suspect]
     Indication: HEPATITIS C
     Route: 048
     Dates: start: 20120420
  2. RIBASPHERE [Concomitant]
     Indication: HEPATITIS C
     Route: 048
     Dates: start: 20120420
  3. PEGASYS [Concomitant]
     Indication: HEPATITIS C
     Route: 058
     Dates: start: 20120420
  4. CENTRUM SILVER [Concomitant]
  5. CALCIUM AND VITAMIN D [Concomitant]

REACTIONS (8)
  - Nerve compression [Unknown]
  - Weight decreased [Unknown]
  - Skin discolouration [Unknown]
  - Oral candidiasis [Unknown]
  - Rash generalised [Unknown]
  - Skin exfoliation [Unknown]
  - Red blood cell count decreased [Unknown]
  - Pruritus generalised [Unknown]
